FAERS Safety Report 5926800-4 (Version None)
Quarter: 2008Q4

REPORT INFORMATION
  Report Type: 
  Country: None (occurrence: None)
  Receive Date: 20081022
  Receipt Date: 20081001
  Transmission Date: 20090506
  Serious: Yes (Other)
  Sender: FDA-Public Use
  Company Number: JP-BAYER-200812487BYL

PATIENT
  Age: 54 Year
  Sex: Male
  Weight: 58 kg

DRUGS (4)
  1. NEXAVAR [Suspect]
     Indication: RENAL CELL CARCINOMA STAGE IV
     Dosage: TOTAL DAILY DOSE: 800 MG  UNIT DOSE: 200 MG
     Route: 048
     Dates: start: 20080625, end: 20080705
  2. NEXAVAR [Suspect]
     Dosage: UNIT DOSE: 200 MG
     Route: 048
     Dates: start: 20080711, end: 20080926
  3. SUMIFERON [Concomitant]
     Indication: RENAL CELL CARCINOMA
     Route: 058
     Dates: start: 20070403
  4. LOXONIN [Concomitant]
     Route: 048
     Dates: start: 20080403

REACTIONS (6)
  - ALOPECIA [None]
  - BLOOD AMYLASE INCREASED [None]
  - DRY MOUTH [None]
  - HEPATIC FUNCTION ABNORMAL [None]
  - PALMAR-PLANTAR ERYTHRODYSAESTHESIA SYNDROME [None]
  - RASH [None]
